FAERS Safety Report 24656386 (Version 1)
Quarter: 2024Q4

REPORT INFORMATION
  Report Type: Spontaneous
  Country: RU (occurrence: RU)
  Receive Date: 20241124
  Receipt Date: 20241124
  Transmission Date: 20250114
  Serious: Yes (Death)
  Sender: BOEHRINGER INGELHEIM
  Company Number: RU-BoehringerIngelheim-2024-BI-064146

PATIENT
  Age: 79 Year
  Sex: Male

DRUGS (2)
  1. NINTEDANIB [Suspect]
     Active Substance: NINTEDANIB
     Indication: Hypersensitivity pneumonitis
     Dosage: DAILY DOSE: 150 MILLIGRAM(S)
     Route: 048
     Dates: start: 2021, end: 202405
  2. NINTEDANIB [Suspect]
     Active Substance: NINTEDANIB
     Indication: Interstitial lung disease

REACTIONS (1)
  - Idiopathic pulmonary fibrosis [Fatal]
